FAERS Safety Report 12236178 (Version 4)
Quarter: 2016Q3

REPORT INFORMATION
  Report Type: Report from Study
  Country: TR (occurrence: TR)
  Receive Date: 20160404
  Receipt Date: 20160706
  Transmission Date: 20161109
  Serious: Yes (Hospitalization)
  Sender: FDA-Public Use
  Company Number: TR-ABBVIE-16P-161-1595360-00

PATIENT
  Age: 71 Year
  Sex: Male
  Weight: 70 kg

DRUGS (5)
  1. LEPONEX [Concomitant]
     Active Substance: CLOZAPINE
     Indication: POOR QUALITY SLEEP
     Dosage: 1X0.5
     Route: 048
  2. DUODOPA [Suspect]
     Active Substance: CARBIDOPA\LEVODOPA
     Indication: PARKINSON^S DISEASE
     Dosage: MD: 7.3 ML,CD: 4.4 ML ED: 2.0 ML
     Route: 050
     Dates: start: 20150513
  3. STALEVO [Concomitant]
     Active Substance: CARBIDOPA\ENTACAPONE\LEVODOPA
     Indication: PARKINSON^S DISEASE
     Route: 048
     Dates: start: 201602
  4. APO-GO [Concomitant]
     Active Substance: APOMORPHINE
     Indication: PARKINSON^S DISEASE
     Dosage: AS NEEDED
     Route: 058
     Dates: end: 201606
  5. APOMORPHINE HYDROCHLORIDE [Concomitant]
     Active Substance: APOMORPHINE HYDROCHLORIDE
     Indication: PRODUCT USED FOR UNKNOWN INDICATION
     Dates: end: 201606

REACTIONS (3)
  - Lung infection [Recovered/Resolved]
  - Productive cough [Recovered/Resolved]
  - Lower respiratory tract infection [Recovered/Resolved]

NARRATIVE: CASE EVENT DATE: 20160325
